FAERS Safety Report 16409810 (Version 2)
Quarter: 2019Q2

REPORT INFORMATION
  Report Type: Spontaneous
  Country: US (occurrence: US)
  Receive Date: 20190610
  Receipt Date: 20190612
  Transmission Date: 20190711
  Serious: No
  Sender: FDA-Public Use
  Company Number: US-PFIZER INC-2019240972

PATIENT
  Age: 43 Year
  Sex: Male
  Weight: 86.17 kg

DRUGS (2)
  1. ADVIL LIQUI-GELS [Suspect]
     Active Substance: IBUPROFEN
     Indication: ARTHRALGIA
     Dosage: UNK UNK, DAILY
  2. ADVIL LIQUI-GELS [Suspect]
     Active Substance: IBUPROFEN
     Indication: PAIN
     Dosage: 200 MG, AS NEEDED
     Route: 048

REACTIONS (5)
  - Skin mass [Unknown]
  - Liver function test increased [Unknown]
  - Intentional product misuse [Unknown]
  - Night sweats [Unknown]
  - White blood cell count decreased [Unknown]
